FAERS Safety Report 23286582 (Version 3)
Quarter: 2024Q3

REPORT INFORMATION
  Report Type: Spontaneous
  Country: US (occurrence: US)
  Receive Date: 20231212
  Receipt Date: 20240807
  Transmission Date: 20241017
  Serious: No
  Sender: SANOFI AVENTIS
  Company Number: US-SA-2023SA311691

PATIENT
  Age: 5 Year
  Sex: Male

DRUGS (12)
  1. DUPIXENT [Suspect]
     Active Substance: DUPILUMAB
     Indication: Dermatitis atopic
     Dosage: 300 MG, Q4W
     Route: 058
     Dates: start: 20230316
  2. DUPIXENT [Suspect]
     Active Substance: DUPILUMAB
     Indication: Dermatitis
  3. DUPIXENT [Suspect]
     Active Substance: DUPILUMAB
     Indication: Dental caries
  4. CLONIDINE [Concomitant]
     Active Substance: CLONIDINE
  5. VYVANSE [Concomitant]
     Active Substance: LISDEXAMFETAMINE DIMESYLATE
  6. MOMETASONE [Concomitant]
     Active Substance: MOMETASONE
  7. RISPERIDONE [Concomitant]
     Active Substance: RISPERIDONE
     Dosage: 0.5MG AT BEDTIME
  8. METHYLPHENIDATE [Concomitant]
     Active Substance: METHYLPHENIDATE
     Dosage: 18 MG QD
  9. ALBUTEROL [Concomitant]
     Active Substance: ALBUTEROL
  10. DULERA [Concomitant]
     Active Substance: FORMOTEROL FUMARATE DIHYDRATE\MOMETASONE FUROATE
  11. LORATADINE [Concomitant]
     Active Substance: LORATADINE
  12. GUANFACINE [Concomitant]
     Active Substance: GUANFACINE
     Dosage: 3 MG BID

REACTIONS (5)
  - Dermatitis [Not Recovered/Not Resolved]
  - Affective disorder [Unknown]
  - Abnormal behaviour [Unknown]
  - Product use in unapproved indication [Unknown]
  - Inappropriate schedule of product administration [Unknown]

NARRATIVE: CASE EVENT DATE: 20230316
